FAERS Safety Report 8620871-2 (Version None)
Quarter: 2012Q3

REPORT INFORMATION
  Report Type: 
  Country: None (occurrence: None)
  Receive Date: 20120824
  Receipt Date: 20120810
  Transmission Date: 20120928
  Serious: Yes (Death)
  Sender: FDA-Public Use
  Company Number: US-ROCHE-1103125

PATIENT

DRUGS (1)
  1. TENECTEPLASE [Suspect]
     Indication: ISCHAEMIC STROKE
     Dosage: DOSE (IN 33 PTS) RANGED FROM 1.5 MG TO 10 MG,
     Route: 013

REACTIONS (1)
  - MULTI-ORGAN FAILURE [None]
